FAERS Safety Report 21881988 (Version 2)
Quarter: 2023Q2

REPORT INFORMATION
  Report Type: Spontaneous
  Country: US (occurrence: US)
  Receive Date: 20230119
  Receipt Date: 20230419
  Transmission Date: 20230721
  Serious: Yes (Other)
  Sender: FDA-Public Use
  Company Number: US-BRISTOL-MYERS SQUIBB COMPANY-2023-008657

PATIENT
  Age: 64 Year
  Sex: Male
  Weight: 112.94 kg

DRUGS (1)
  1. OPDIVO [Suspect]
     Active Substance: NIVOLUMAB
     Indication: Renal cell carcinoma
     Dosage: DOSE : 480MG;     FREQ : EVERY 4 WEEKS
     Route: 042

REACTIONS (1)
  - Spinal cord injury [Unknown]
